FAERS Safety Report 6809538-0 (Version None)
Quarter: 2010Q2

REPORT INFORMATION
  Report Type: 
  Country: None (occurrence: None)
  Receive Date: 20100630
  Receipt Date: 20100617
  Transmission Date: 20101027
  Serious: Yes (Other)
  Sender: FDA-Public Use
  Company Number: PHHY2010JP40018

PATIENT
  Age: 89 Year
  Sex: Female

DRUGS (3)
  1. RASILEZ [Suspect]
     Indication: HYPERTENSION
     Dosage: 150 MG
     Route: 048
     Dates: start: 20091226
  2. ATELEC [Concomitant]
     Dosage: 10 MG
     Route: 048
  3. CRESTOR [Concomitant]
     Dosage: 2.5 MG
     Route: 048

REACTIONS (5)
  - DRUG DOSE OMISSION [None]
  - FEELING ABNORMAL [None]
  - HEPATIC FUNCTION ABNORMAL [None]
  - JAUNDICE [None]
  - VOMITING [None]
